FAERS Safety Report 8976977 (Version 1)
Quarter: 2012Q4

REPORT INFORMATION
  Report Type: 
  Country: US (occurrence: US)
  Receive Date: 20121220
  Receipt Date: 20121220
  Transmission Date: 20130627
  Serious: No
  Sender: FDA-Public Use
  Company Number: US-GLAXOSMITHKLINE-A0967005A

PATIENT
  Age: 62 Year
  Sex: Female

DRUGS (2)
  1. SORIATANE [Suspect]
     Indication: PSORIASIS
     Dosage: 25MG Alternate days
     Route: 048
  2. REMICADE [Concomitant]

REACTIONS (1)
  - Condition aggravated [Recovered/Resolved]
